FAERS Safety Report 10543634 (Version 1)
Quarter: 2014Q4

REPORT INFORMATION
  Report Type: Spontaneous
  Country: FR (occurrence: FR)
  Receive Date: 20141027
  Receipt Date: 20141027
  Transmission Date: 20150529
  Serious: Yes (Hospitalization)
  Sender: FDA-Public Use
  Company Number: FR-LEO PHARMA-230338

PATIENT
  Age: 64 Year
  Sex: Female

DRUGS (7)
  1. VERCYTE [Suspect]
     Active Substance: PIPOBROMAN
     Indication: POLYCYTHAEMIA
     Route: 048
     Dates: start: 200607, end: 200703
  2. SORIATANE [Suspect]
     Active Substance: ACITRETIN
     Indication: PSORIASIS
     Route: 048
     Dates: start: 2005
  3. DAIVONEX [Suspect]
     Active Substance: CALCIPOTRIENE
     Indication: PSORIASIS
     Route: 061
     Dates: start: 2010
  4. ATENOLOL. [Suspect]
     Active Substance: ATENOLOL
     Indication: HYPERTENSION
  5. HYDREA [Suspect]
     Active Substance: HYDROXYUREA
     Indication: POLYCYTHAEMIA
     Route: 048
     Dates: start: 200512, end: 200607
  6. NERISONE [Suspect]
     Active Substance: DIFLUCORTOLONE VALERATE
     Indication: PSORIASIS
     Route: 061
     Dates: start: 2010
  7. METHROTREXATE [Suspect]
     Active Substance: METHOTREXATE
     Indication: PSORIASIS
     Route: 048

REACTIONS (3)
  - Hepatic cirrhosis [Not Recovered/Not Resolved]
  - Ascites [Not Recovered/Not Resolved]
  - Varices oesophageal [Not Recovered/Not Resolved]

NARRATIVE: CASE EVENT DATE: 201407
